FAERS Safety Report 7906972-2 (Version None)
Quarter: 2011Q4

REPORT INFORMATION
  Report Type: 
  Country: None (occurrence: None)
  Receive Date: 20111110
  Receipt Date: 20111031
  Transmission Date: 20120403
  Serious: Yes (Hospitalization)
  Sender: FDA-Public Use
  Company Number: NL-PERRIGO-11NL009455

PATIENT
  Age: 15 Year
  Sex: Female

DRUGS (3)
  1. UNSPECIFIED CHEMOTHERAPY [Concomitant]
     Indication: HODGKIN'S DISEASE
     Route: 065
  2. BLOOD CELLS, PACKED HUMAN [Concomitant]
     Indication: HODGKIN'S DISEASE
     Route: 042
  3. PREDNISOLONE SODIUM PHOSPHATE [Suspect]
     Indication: HODGKIN'S DISEASE
     Dosage: 40 MG/M2, QD FOR 14 DAYS EVERY 3 WEEKS
     Route: 048

REACTIONS (8)
  - HYPOTENSION [None]
  - C-REACTIVE PROTEIN INCREASED [None]
  - FEELING COLD [None]
  - PYREXIA [None]
  - COUGH [None]
  - TACHYCARDIA [None]
  - ADRENAL INSUFFICIENCY [None]
  - MALAISE [None]
